FAERS Safety Report 9272924 (Version 2)
Quarter: 2013Q2

REPORT INFORMATION
  Report Type: Spontaneous
  Country: US (occurrence: US)
  Receive Date: 20130506
  Receipt Date: 20130610
  Transmission Date: 20140414
  Serious: Yes (Hospitalization, Other)
  Sender: FDA-Public Use
  Company Number: US-ASTRAZENECA-2011SE47192

PATIENT
  Age: 84 Year
  Sex: Female
  Weight: 56.7 kg

DRUGS (12)
  1. ENTOCORT EC [Suspect]
     Indication: COLITIS
     Route: 048
     Dates: start: 2011, end: 2011
  2. ENTOCORT EC [Suspect]
     Indication: COLITIS
     Route: 048
     Dates: start: 2011, end: 2011
  3. ENTOCORT EC [Suspect]
     Indication: COLITIS
     Dosage: GENERIC
     Route: 048
     Dates: start: 2012, end: 2012
  4. ENTOCORT EC [Suspect]
     Indication: COLITIS
     Route: 048
     Dates: start: 2012, end: 2012
  5. ENTOCORT EC [Suspect]
     Indication: COLITIS
     Route: 048
     Dates: start: 201301, end: 201304
  6. METAMUCIL [Suspect]
  7. ASACOL [Concomitant]
     Indication: COLITIS
  8. LOTREL [Concomitant]
     Indication: BLOOD PRESSURE ABNORMAL
     Dosage: 5 20 DAILY
  9. ZOCOR [Concomitant]
     Indication: BLOOD CHOLESTEROL INCREASED
  10. FASOMAX [Concomitant]
     Indication: BONE DECALCIFICATION
  11. PENTASA [Concomitant]
     Dates: start: 2012
  12. LIALDA [Concomitant]
     Dates: start: 2012

REACTIONS (18)
  - Loss of consciousness [Unknown]
  - Hyperhidrosis [Unknown]
  - Chills [Unknown]
  - Physical disability [Unknown]
  - Vomiting [Unknown]
  - Angiopathy [Unknown]
  - Colitis ischaemic [Unknown]
  - Tremor [Unknown]
  - Screaming [Unknown]
  - Fatigue [Unknown]
  - Cataract [Unknown]
  - Pain [Unknown]
  - Discomfort [Unknown]
  - Malaise [Unknown]
  - Vision blurred [Unknown]
  - Dyspepsia [Unknown]
  - Off label use [Unknown]
  - Drug ineffective for unapproved indication [Unknown]
